FAERS Safety Report 9910180 (Version 1)
Quarter: 2014Q1

REPORT INFORMATION
  Report Type: Spontaneous
  Country: US (occurrence: None)
  Receive Date: 20140218
  Receipt Date: 20140218
  Transmission Date: 20141002
  Serious: Yes (Life-Threatening, Hospitalization, Other)
  Sender: FDA-Public Use
  Company Number: None

PATIENT
  Sex: Male
  Weight: 90.72 kg

DRUGS (1)
  1. TESTOPEL [Suspect]
     Indication: BLOOD TESTOSTERONE DECREASED
     Dosage: IMPLANTS
     Dates: start: 20110614

REACTIONS (8)
  - Pain in extremity [None]
  - Pain in extremity [None]
  - Skin discolouration [None]
  - Pain in extremity [None]
  - Blood glucose increased [None]
  - Blood cholesterol increased [None]
  - Cerebrovascular accident [None]
  - Thrombosis [None]
